FAERS Safety Report 7348303-5 (Version None)
Quarter: 2011Q1

REPORT INFORMATION
  Report Type: 
  Country: None (occurrence: None)
  Receive Date: 20110311
  Receipt Date: 20110301
  Transmission Date: 20110831
  Serious: Yes (Other)
  Sender: FDA-Public Use
  Company Number: US-ELI_LILLY_AND_COMPANY-US201103000465

PATIENT
  Sex: Female

DRUGS (7)
  1. FEMARA [Concomitant]
  2. FISH OIL [Concomitant]
  3. EVISTA [Suspect]
     Indication: OSTEOPENIA
     Dosage: 60 MG, DAILY (1/D)
  4. BIO-H-TIN [Concomitant]
  5. VITAMIN D [Concomitant]
  6. ZETIA [Concomitant]
  7. CRESTOR [Concomitant]

REACTIONS (4)
  - MUSCLE SPASMS [None]
  - HOT FLUSH [None]
  - PAIN IN EXTREMITY [None]
  - BREAST CANCER STAGE II [None]
